FAERS Safety Report 26038189 (Version 1)
Quarter: 2025Q4

REPORT INFORMATION
  Report Type: Spontaneous
  Country: US (occurrence: US)
  Receive Date: 20251113
  Receipt Date: 20251113
  Transmission Date: 20260118
  Serious: Yes (Other)
  Sender: BRISTOL-MYERS SQUIBB COMPANY
  Company Number: US-BRISTOL-MYERS SQUIBB COMPANY-2025-152653

PATIENT
  Age: 80 Year
  Sex: Female

DRUGS (1)
  1. REVLIMID [Suspect]
     Active Substance: LENALIDOMIDE
     Indication: Diffuse large B-cell lymphoma
     Dosage: DAILY ON DAYS 1-14 OF EACH 28-DAY CYCLE
     Route: 048
     Dates: start: 20240817

REACTIONS (5)
  - Diarrhoea [Unknown]
  - Oedema peripheral [Unknown]
  - Pruritus [Unknown]
  - Neuropathy peripheral [Unknown]
  - Seborrhoeic keratosis [Unknown]
